FAERS Safety Report 21638659 (Version 13)
Quarter: 2024Q2

REPORT INFORMATION
  Report Type: Spontaneous
  Country: US (occurrence: US)
  Receive Date: 20221124
  Receipt Date: 20240522
  Transmission Date: 20240716
  Serious: No
  Sender: FDA-Public Use
  Company Number: US-DSJP-DSU-2022-142598AA

PATIENT
  Sex: Female

DRUGS (4)
  1. TURALIO [Suspect]
     Active Substance: PEXIDARTINIB HYDROCHLORIDE
     Indication: Connective tissue neoplasm
     Dosage: 200 MG, BID
     Route: 048
     Dates: start: 20221116
  2. TURALIO [Suspect]
     Active Substance: PEXIDARTINIB HYDROCHLORIDE
     Indication: Soft tissue neoplasm
     Dosage: 250 MG, BID
     Route: 048
     Dates: start: 20221116
  3. TURALIO [Suspect]
     Active Substance: PEXIDARTINIB HYDROCHLORIDE
     Dosage: 250 MG, BID
     Route: 048
     Dates: start: 20230207
  4. TURALIO [Suspect]
     Active Substance: PEXIDARTINIB HYDROCHLORIDE
     Dosage: 125MG CAPSULES, 1 CAPSULE BY MOUTH EVERY MORNING AND 2 CAPSULES BY MOUTH
     Route: 048

REACTIONS (15)
  - Viral infection [Not Recovered/Not Resolved]
  - Blood albumin abnormal [Not Recovered/Not Resolved]
  - Enzyme level increased [Not Recovered/Not Resolved]
  - Rosacea [Not Recovered/Not Resolved]
  - Fungal infection [Not Recovered/Not Resolved]
  - Unevaluable event [Not Recovered/Not Resolved]
  - Abdominal discomfort [Not Recovered/Not Resolved]
  - Constipation [Not Recovered/Not Resolved]
  - Aphthous ulcer [Not Recovered/Not Resolved]
  - Hair colour changes [Not Recovered/Not Resolved]
  - Fatigue [Not Recovered/Not Resolved]
  - Pruritus [Not Recovered/Not Resolved]
  - Periorbital swelling [Not Recovered/Not Resolved]
  - Rash [Recovering/Resolving]
  - Therapy cessation [Unknown]

NARRATIVE: CASE EVENT DATE: 20220101
